FAERS Safety Report 21422132 (Version 2)
Quarter: 2022Q4

REPORT INFORMATION
  Report Type: Spontaneous
  Country: PT (occurrence: PT)
  Receive Date: 20221007
  Receipt Date: 20221216
  Transmission Date: 20230113
  Serious: Yes (Other)
  Sender: FDA-Public Use
  Company Number: None

PATIENT
  Age: 48 Year
  Sex: Female
  Weight: 69 kg

DRUGS (3)
  1. NEURONTIN [Suspect]
     Active Substance: GABAPENTIN
     Indication: Neuralgia
     Dosage: 100 MILLIGRAM, Q6H, 4X DAY
     Route: 048
     Dates: start: 20220708
  2. NEUROBION [Concomitant]
     Active Substance: CYANOCOBALAMIN\PYRIDOXINE\THIAMINE
     Dosage: STRENGTH 0.2 MG + 200 MG + 100 MG
     Route: 048
  3. LEVOTHYROXINE SODIUM [Concomitant]
     Active Substance: LEVOTHYROXINE SODIUM
     Route: 048

REACTIONS (2)
  - Dermatitis allergic [Unknown]
  - Urticaria [Unknown]

NARRATIVE: CASE EVENT DATE: 20220708
